FAERS Safety Report 10508993 (Version 2)
Quarter: 2015Q1

REPORT INFORMATION
  Report Type: Spontaneous
  Country: IT (occurrence: IT)
  Receive Date: 20141009
  Receipt Date: 20150122
  Transmission Date: 20150720
  Serious: Yes (Hospitalization)
  Sender: FDA-Public Use
  Company Number: CHPA2014IT013591

PATIENT
  Age: 73 Year
  Sex: Female

DRUGS (5)
  1. ACEDIUR [Concomitant]
  2. NORVASC [Concomitant]
     Active Substance: AMLODIPINE BESYLATE
  3. PURSENNID [Suspect]
     Active Substance: SENNOSIDES A AND B
     Indication: PRODUCT USED FOR UNKNOWN INDICATION
     Dosage: 1 DF, ONCE/SINGLE
     Route: 048
     Dates: start: 20140926, end: 20140926
  4. ARCOXIA [Concomitant]
     Active Substance: ETORICOXIB
  5. MODURETIC 5-50 [Concomitant]
     Active Substance: AMILORIDE HYDROCHLORIDE\HYDROCHLOROTHIAZIDE

REACTIONS (3)
  - Femur fracture [Recovering/Resolving]
  - Syncope [Recovering/Resolving]
  - Diarrhoea [Recovering/Resolving]

NARRATIVE: CASE EVENT DATE: 20140926
